FAERS Safety Report 8788176 (Version 1)
Quarter: 2012Q4

REPORT INFORMATION
  Report Type: Report from Study
  Country: US (occurrence: US)
  Receive Date: 20120914
  Receipt Date: 20120914
  Transmission Date: 20130627
  Serious: No
  Sender: FDA-Public Use
  Company Number: US-VERTEX PHARMACEUTICAL INC.-AE-2012-010125

PATIENT

DRUGS (10)
  1. INCIVEK [Suspect]
     Indication: HEPATITIS C
     Route: 048
  2. RIBAVIRIN [Concomitant]
     Indication: HEPATITIS C
  3. PEG-INTRON KIT [Concomitant]
     Indication: HEPATITIS C
  4. TRICOR [Concomitant]
  5. WELLBUTRIN [Concomitant]
  6. VITAMIN E [Concomitant]
  7. MICARDIS [Concomitant]
  8. FISH OIL [Concomitant]
  9. GLUCOSAMINE [Concomitant]
  10. CARDURA [Concomitant]

REACTIONS (15)
  - Amnesia [Unknown]
  - Dyspnoea [Unknown]
  - Dysphonia [Unknown]
  - Confusional state [Unknown]
  - Depressed mood [Unknown]
  - Alopecia [Unknown]
  - Dry mouth [Unknown]
  - Injection site dryness [Unknown]
  - Dry skin [Unknown]
  - Fatigue [Unknown]
  - Anaemia [Unknown]
  - Anorectal discomfort [Unknown]
  - Rectal haemorrhage [Unknown]
  - Diarrhoea [Unknown]
  - Nausea [Unknown]
